FAERS Safety Report 7080568-X (Version None)
Quarter: 2010Q4

REPORT INFORMATION
  Report Type: 
  Country: None (occurrence: None)
  Receive Date: 20101103
  Receipt Date: 20101021
  Transmission Date: 20110411
  Serious: Yes (Hospitalization)
  Sender: FDA-Public Use
  Company Number: US-ELI_LILLY_AND_COMPANY-US201004005698

PATIENT
  Sex: Female

DRUGS (9)
  1. FORTEO [Suspect]
     Indication: OSTEOPOROSIS
     Dosage: 20 UG, DAILY (1/D)
     Dates: start: 20091201
  2. FORTEO [Suspect]
     Dosage: 20 UG, DAILY (1/D)
  3. FLUOXETINE HCL [Concomitant]
     Dosage: 1 D/F, 3/D
  4. ASPIRIN [Concomitant]
     Dosage: 81 MG, DAILY (1/D)
  5. KLOR-CON M [Concomitant]
     Dosage: 10 MEQ, DAILY (1/D)
  6. CALTRATE /00108001/ [Concomitant]
     Dosage: 1 D/F, DAILY (1/D)
  7. CENTRUM [Concomitant]
     Dosage: 1 D/F, DAILY (1/D)
  8. FISH OIL [Concomitant]
     Dosage: 2000 IU, UNK
  9. METOPROLOL [Concomitant]
     Dosage: 1 D/F, DAILY (1/D)

REACTIONS (11)
  - ANKLE FRACTURE [None]
  - ARTHRALGIA [None]
  - DRUG INEFFECTIVE [None]
  - FALL [None]
  - FEAR OF FALLING [None]
  - IMPAIRED HEALING [None]
  - JOINT SWELLING [None]
  - NAIL GROWTH ABNORMAL [None]
  - PAIN [None]
  - POLLAKIURIA [None]
  - THROMBOSIS [None]
